FAERS Safety Report 5426990-6 (Version None)
Quarter: 2007Q3

REPORT INFORMATION
  Report Type: 
  Country: None (occurrence: None)
  Receive Date: 20070731
  Receipt Date: 20070423
  Transmission Date: 20080115
  Serious: No
  Sender: FDA-Public Use
  Company Number: US200704005207

PATIENT
  Age: 55 Year
  Sex: Male

DRUGS (6)
  1. BYETTA [Suspect]
     Indication: TYPE 2 DIABETES MELLITUS
     Dosage: 5 UG, 2/D, SUBCUTANEOUS; 10 UG, 2/D, SUBCUTANEOUS
     Route: 058
     Dates: start: 20060101, end: 20060101
  2. BYETTA [Suspect]
     Indication: TYPE 2 DIABETES MELLITUS
     Dosage: 5 UG, 2/D, SUBCUTANEOUS; 10 UG, 2/D, SUBCUTANEOUS
     Route: 058
     Dates: start: 20060101
  3. EXENATIDE [Concomitant]
  4. METFORMIN HCL [Concomitant]
  5. BENICAR [Concomitant]
  6. TOPROL-XL [Concomitant]

REACTIONS (4)
  - BLOOD POTASSIUM DECREASED [None]
  - INCREASED APPETITE [None]
  - NAUSEA [None]
  - REGURGITATION [None]
